FAERS Safety Report 11823149 (Version 1)
Quarter: 2015Q4

REPORT INFORMATION
  Report Type: Report from Study
  Country: DE (occurrence: CO)
  Receive Date: 20151210
  Receipt Date: 20151210
  Transmission Date: 20160305
  Serious: Yes (Death, Other)
  Sender: FDA-Public Use
  Company Number: DE-ACTELION-A-NJ2015-128354

PATIENT
  Age: 81 Year
  Sex: Female

DRUGS (6)
  1. VENTAVIS [Suspect]
     Active Substance: ILOPROST
     Indication: PULMONARY HYPERTENSION
     Dosage: 60 MCG, QD
     Route: 055
     Dates: start: 20150206
  2. RIVAROXABAN [Concomitant]
     Active Substance: RIVAROXABAN
  3. VENTAVIS [Suspect]
     Active Substance: ILOPROST
     Dosage: 1 DF, QID
     Route: 055
     Dates: start: 201506, end: 20151101
  4. OMEPRAZOLE. [Concomitant]
     Active Substance: OMEPRAZOLE
  5. LOVASTATIN. [Concomitant]
     Active Substance: LOVASTATIN
  6. SILDENAFIL. [Concomitant]
     Active Substance: SILDENAFIL

REACTIONS (9)
  - Faeces discoloured [Unknown]
  - Respiratory arrest [Unknown]
  - Chest pain [Not Recovered/Not Resolved]
  - Death [Fatal]
  - Dizziness [Not Recovered/Not Resolved]
  - Off label use [Not Recovered/Not Resolved]
  - Asthenia [Not Recovered/Not Resolved]
  - Productive cough [Not Recovered/Not Resolved]
  - Headache [Not Recovered/Not Resolved]

NARRATIVE: CASE EVENT DATE: 20150206
